FAERS Safety Report 6500413-8 (Version None)
Quarter: 2009Q4

REPORT INFORMATION
  Report Type: 
  Country: None (occurrence: None)
  Receive Date: 20091216
  Receipt Date: 20091207
  Transmission Date: 20100525
  Serious: Yes (Other)
  Sender: FDA-Public Use
  Company Number: PHEH2009US12835

PATIENT
  Sex: Male
  Weight: 22.5 kg

DRUGS (6)
  1. EXJADE [Suspect]
     Indication: IRON OVERLOAD
     Dosage: 500 MG, QD
     Route: 048
     Dates: start: 20090903, end: 20090901
  2. EXJADE [Suspect]
     Indication: SICKLE CELL ANAEMIA
     Dosage: 500 MG, QD
     Route: 048
     Dates: start: 20091112, end: 20091119
  3. PENICILLIN VK [Concomitant]
     Indication: SPLENECTOMY
     Dosage: 250 MG, BID
     Route: 048
     Dates: start: 20040101
  4. FOLIC ACID [Concomitant]
     Indication: HAEMOLYTIC ANAEMIA
     Dosage: 1 MG, QD
     Route: 048
     Dates: start: 20040101
  5. ASPIRIN [Concomitant]
     Indication: CEREBROVASCULAR ACCIDENT PROPHYLAXIS
     Dosage: 81 MG, QD
     Route: 048
     Dates: start: 20040101
  6. KEPPRA [Concomitant]
     Indication: CONVULSION
     Dosage: 1000 MG, BID
     Route: 048
     Dates: start: 20040101

REACTIONS (3)
  - BLOOD BILIRUBIN INCREASED [None]
  - CHROMATURIA [None]
  - JAUNDICE [None]
